FAERS Safety Report 9735623 (Version 1)
Quarter: 2013Q4

REPORT INFORMATION
  Report Type: Spontaneous
  Country: FR (occurrence: FR)
  Receive Date: 20131206
  Receipt Date: 20131206
  Transmission Date: 20140711
  Serious: Yes (Hospitalization)
  Sender: FDA-Public Use
  Company Number: PHHY2013FR142134

PATIENT
  Age: 86 Year
  Sex: Female

DRUGS (6)
  1. VOLTARENE [Suspect]
     Dosage: 1 DF, QD
     Route: 048
     Dates: end: 20130929
  2. PLAVIX [Suspect]
     Dosage: 1 DF, QD
     Route: 048
     Dates: end: 20131001
  3. TARKA LP [Concomitant]
  4. FUROSEMIDE [Concomitant]
     Dosage: UNK UKN, UNK
  5. FUROSEMIDE [Concomitant]
     Dosage: UNK UKN, UNK
  6. ALLOPURINOL [Concomitant]

REACTIONS (2)
  - Haemothorax [Recovering/Resolving]
  - Anaemia [Recovering/Resolving]
